FAERS Safety Report 13706016 (Version 2)
Quarter: 2017Q3

REPORT INFORMATION
  Report Type: Report from Study
  Country: CR (occurrence: CR)
  Receive Date: 20170630
  Receipt Date: 20170704
  Transmission Date: 20171127
  Serious: Yes (Life-Threatening, Other)
  Sender: FDA-Public Use
  Company Number: PHHY2017CR068713

PATIENT
  Sex: Male
  Weight: 84 kg

DRUGS (4)
  1. TASIGNA [Suspect]
     Active Substance: NILOTINIB
     Dosage: 200 MG, Q12H (2 DF OF 200 MG, EVERY 12 HOURS)
     Route: 048
  2. TASIGNA [Suspect]
     Active Substance: NILOTINIB
     Indication: CHRONIC MYELOID LEUKAEMIA
     Dosage: 2 DF, BID (2 DOSES IN MORNING AND 2 IN AFTERNOON)
     Route: 048
     Dates: start: 20170504
  3. METFORMIN [Concomitant]
     Active Substance: METFORMIN HYDROCHLORIDE
     Indication: DIABETES MELLITUS
     Dosage: 1 DF, BID 1 TABLET IN THE MORNING AND (1TABLET IN AFTERNOON/NIGHT)
     Route: 048
  4. INSULIN [Concomitant]
     Active Substance: INSULIN NOS
     Indication: DIABETES MELLITUS
     Dosage: UNK UNK, BID (IN THE MORNING AND AT NIGHT)
     Route: 065

REACTIONS (42)
  - Nausea [Not Recovered/Not Resolved]
  - Terminal state [Unknown]
  - Sexual dysfunction [Unknown]
  - Rash macular [Unknown]
  - Arthralgia [Unknown]
  - Hypersensitivity [Unknown]
  - Weight decreased [Unknown]
  - Suicide attempt [Unknown]
  - Blood glucose increased [Unknown]
  - Lacrimation increased [Unknown]
  - Eating disorder [Unknown]
  - Renal pain [Unknown]
  - Cold sweat [Unknown]
  - Sight disability [Unknown]
  - Diabetes mellitus [Unknown]
  - Scleral discolouration [Unknown]
  - Eye disorder [Unknown]
  - Affective disorder [Unknown]
  - Decreased appetite [Unknown]
  - Asthenia [Unknown]
  - Vomiting [Unknown]
  - Myalgia [Recovering/Resolving]
  - Hypoaesthesia [Unknown]
  - Productive cough [Unknown]
  - Pain in extremity [Unknown]
  - Hyperhidrosis [Unknown]
  - Dyspnoea [Unknown]
  - Pruritus [Unknown]
  - Back pain [Recovering/Resolving]
  - Vision blurred [Unknown]
  - Paraesthesia [Recovering/Resolving]
  - Agitation [Unknown]
  - Insomnia [Unknown]
  - Malaise [Unknown]
  - Pain [Unknown]
  - Pyrexia [Unknown]
  - Eyelid oedema [Unknown]
  - Influenza [Not Recovered/Not Resolved]
  - Bone pain [Unknown]
  - Chest pain [Unknown]
  - Urticaria [Unknown]
  - Influenza like illness [Unknown]
